FAERS Safety Report 24954819 (Version 1)
Quarter: 2025Q1

REPORT INFORMATION
  Report Type: Spontaneous
  Country: US (occurrence: US)
  Receive Date: 20250211
  Receipt Date: 20250211
  Transmission Date: 20250409
  Serious: No
  Sender: BAYER HEALTHCARE LLC
  Company Number: US-BAYER-2025A013042

PATIENT
  Sex: Female

DRUGS (1)
  1. MIRALAX [Suspect]
     Active Substance: POLYETHYLENE GLYCOL 3350
     Indication: General physical condition
     Dosage: UNK UNK, QD
     Route: 048

REACTIONS (3)
  - Product use in unapproved indication [Unknown]
  - Product use complaint [None]
  - Intentional product use issue [None]
